FAERS Safety Report 10665293 (Version 2)
Quarter: 2015Q1

REPORT INFORMATION
  Report Type: Spontaneous
  Country: FR (occurrence: FR)
  Receive Date: 20141219
  Receipt Date: 20150113
  Transmission Date: 20150720
  Serious: Yes (Life-Threatening, Hospitalization, Other)
  Sender: FDA-Public Use
  Company Number: FR-ASTRAZENECA-2014SE96631

PATIENT
  Age: 122 Day
  Sex: Female
  Weight: 6.6 kg

DRUGS (6)
  1. HEMANGIOL [Suspect]
     Active Substance: PROPRANOLOL HYDROCHLORIDE
     Indication: INFANTILE HAEMANGIOMA
     Route: 048
     Dates: start: 20140818, end: 20140825
  2. HEMANGIOL [Suspect]
     Active Substance: PROPRANOLOL HYDROCHLORIDE
     Indication: INFANTILE HAEMANGIOMA
     Route: 048
     Dates: start: 20140808, end: 20140818
  3. XYLOCAINE [Suspect]
     Active Substance: LIDOCAINE HYDROCHLORIDE
     Indication: ANAL DILATATION
     Dosage: 2 %, AROUND 1.5 ML FOR A COURSE
     Route: 054
     Dates: start: 20140930, end: 20141014
  4. CAMILA [Suspect]
     Active Substance: NORETHINDRONE
     Route: 065
  5. HEMANGIOL [Suspect]
     Active Substance: PROPRANOLOL HYDROCHLORIDE
     Indication: INFANTILE HAEMANGIOMA
     Dosage: 3 MG/KG DAILY, AS 6 MG MORNING AND NIGHT
     Route: 048
     Dates: start: 20140825, end: 20141013
  6. DAKTARIN [Suspect]
     Active Substance: MICONAZOLE NITRATE
     Route: 002

REACTIONS (16)
  - Coma [Recovered/Resolved]
  - Hypophagia [Unknown]
  - Blood pH decreased [None]
  - PCO2 increased [None]
  - Status epilepticus [Recovered/Resolved]
  - Vomiting [Unknown]
  - Blood lactic acid increased [None]
  - Respiratory arrest [Unknown]
  - Generalised tonic-clonic seizure [Unknown]
  - Off label use [Recovered/Resolved]
  - Bradycardia [None]
  - Hypoglycaemia [None]
  - Gastroenteritis [Unknown]
  - Nasopharyngitis [Unknown]
  - Cyanosis [None]
  - Hypophagia [None]

NARRATIVE: CASE EVENT DATE: 20140930
